FAERS Safety Report 8809248 (Version 1)
Quarter: 2012Q4

REPORT INFORMATION
  Report Type: Spontaneous
  Country: US (occurrence: None)
  Receive Date: 20120921
  Receipt Date: 20120921
  Transmission Date: 20130627
  Serious: Yes (Hospitalization, Other)
  Sender: FDA-Public Use
  Company Number: None

PATIENT
  Age: 76 Year
  Sex: Male
  Weight: 80.4 kg

DRUGS (2)
  1. VANCOMYCIN [Suspect]
     Route: 042
     Dates: start: 20120821, end: 20120907
  2. VANCOMYCIN [Suspect]
     Dosage: Other
     Route: 042
     Dates: start: 20120821, end: 20120907

REACTIONS (9)
  - Pyrexia [None]
  - Erythema [None]
  - Anaemia [None]
  - Decreased appetite [None]
  - Fatigue [None]
  - Faeces discoloured [None]
  - Wound secretion [None]
  - Renal tubular necrosis [None]
  - Renal failure acute [None]
